FAERS Safety Report 5623869-1 (Version None)
Quarter: 2008Q1

REPORT INFORMATION
  Report Type: 
  Country: None (occurrence: None)
  Receive Date: 20080207
  Receipt Date: 20080123
  Transmission Date: 20080703
  Serious: Yes (Hospitalization)
  Sender: FDA-Public Use
  Company Number: DSA_31341_2008

PATIENT
  Sex: Male

DRUGS (7)
  1. LORAZEPAM [Suspect]
     Indication: ANXIETY DISORDER
     Dosage: 1 MG QD ORAL, 1 MG BID ORAL
     Route: 048
     Dates: start: 20070501, end: 20070501
  2. LORAZEPAM [Suspect]
     Indication: ANXIETY DISORDER
     Dosage: 1 MG QD ORAL, 1 MG BID ORAL
     Route: 048
     Dates: start: 20070502, end: 20070503
  3. SINEMET [Concomitant]
  4. SIRADALUD [Concomitant]
  5. PANTOZOL [Concomitant]
  6. ALDACTONE [Concomitant]
  7. REMERON [Concomitant]

REACTIONS (1)
  - MANIA [None]
